FAERS Safety Report 9247332 (Version 2)
Quarter: 2013Q2

REPORT INFORMATION
  Report Type: Spontaneous
  Country: US (occurrence: US)
  Receive Date: 20130423
  Receipt Date: 20130522
  Transmission Date: 20140414
  Serious: No
  Sender: FDA-Public Use
  Company Number: US-009507513-1304USA009544

PATIENT
  Age: 91 Year
  Sex: Male

DRUGS (1)
  1. SINEMET [Suspect]
     Indication: TREMOR
     Dosage: TAKES TWO PILLS A DAY
     Route: 048
     Dates: start: 201204

REACTIONS (1)
  - Nervousness [Not Recovered/Not Resolved]
